FAERS Safety Report 10181534 (Version 2)
Quarter: 2014Q2

REPORT INFORMATION
  Report Type: Spontaneous
  Country: US (occurrence: US)
  Receive Date: 20140519
  Receipt Date: 20140520
  Transmission Date: 20141212
  Serious: Yes (Disabling)
  Sender: FDA-Public Use
  Company Number: US-PFIZER INC-2014136018

PATIENT
  Age: 50 Year
  Sex: Female
  Weight: 104.31 kg

DRUGS (2)
  1. EFFEXOR XR [Suspect]
     Indication: DEPRESSION
     Dosage: 75 MG, DAILY
     Dates: start: 2000
  2. EFFEXOR XR [Suspect]
     Dosage: 75 MG, 2X/DAY

REACTIONS (3)
  - Musculoskeletal disorder [Unknown]
  - Back disorder [Unknown]
  - Condition aggravated [Unknown]
